FAERS Safety Report 7654640-7 (Version None)
Quarter: 2011Q3

REPORT INFORMATION
  Report Type: 
  Country: None (occurrence: None)
  Receive Date: 20110803
  Receipt Date: 20110729
  Transmission Date: 20111222
  Serious: Yes (Hospitalization)
  Sender: FDA-Public Use
  Company Number: DE-BRISTOL-MYERS SQUIBB COMPANY-15935299

PATIENT
  Age: 40 Year
  Sex: Male

DRUGS (3)
  1. NORVIR [Suspect]
     Indication: HIV INFECTION
     Dates: start: 20040501
  2. REYATAZ [Suspect]
     Indication: HIV INFECTION
     Dates: start: 20040501
  3. TRUVADA [Suspect]
     Indication: HIV INFECTION
     Dates: start: 20040501

REACTIONS (4)
  - HYDRONEPHROSIS [None]
  - CALCULUS URINARY [None]
  - KIDNEY RUPTURE [None]
  - URINOMA [None]
